FAERS Safety Report 10057010 (Version 1)
Quarter: 2014Q2

REPORT INFORMATION
  Report Type: Spontaneous
  Country: US (occurrence: US)
  Receive Date: 20140403
  Receipt Date: 20140403
  Transmission Date: 20141212
  Serious: Yes (Other)
  Sender: FDA-Public Use
  Company Number: US-LUNDBECK-DKLU1098730

PATIENT
  Age: 36 Year
  Sex: Male

DRUGS (3)
  1. SABRIL     (TABLET) [Suspect]
     Indication: GENERALISED NON-CONVULSIVE EPILEPSY
  2. SABRIL     (TABLET) [Suspect]
     Indication: GENERALISED TONIC-CLONIC SEIZURE
  3. LAMOTRIGINE [Concomitant]
     Indication: PRODUCT USED FOR UNKNOWN INDICATION

REACTIONS (1)
  - Testis cancer [Not Recovered/Not Resolved]
